FAERS Safety Report 4502993-0 (Version None)
Quarter: 2004Q4

REPORT INFORMATION
  Report Type: 
  Country: None (occurrence: None)
  Receive Date: 20041116
  Receipt Date: 20041116
  Transmission Date: 20050328
  Serious: Yes (Life-Threatening, Hospitalization)
  Sender: FDA-Public Use
  Company Number: None

PATIENT
  Age: 45 Year
  Sex: Male

DRUGS (1)
  1. ASPARAGINASE [Suspect]
     Dosage: 20000 UNITS   5TH CYCLE CHEM   SUBCUTANEO
     Route: 058

REACTIONS (5)
  - CARDIO-RESPIRATORY ARREST [None]
  - CHEST PAIN [None]
  - COMA [None]
  - FALL [None]
  - PULSE PRESSURE DECREASED [None]
